FAERS Safety Report 4951907-8 (Version None)
Quarter: 2006Q1

REPORT INFORMATION
  Report Type: 
  Country: None (occurrence: None)
  Receive Date: 20060313
  Receipt Date: 20060313
  Transmission Date: 20060701
  Serious: No
  Sender: FDA-Public Use
  Company Number: None

PATIENT
  Sex: Male

DRUGS (1)
  1. TRILEPTAL [Suspect]
     Dosage: 900MG

REACTIONS (4)
  - DIZZINESS [None]
  - FEELING ABNORMAL [None]
  - HYPERTENSION [None]
  - PALPITATIONS [None]
